FAERS Safety Report 6772577-2 (Version None)
Quarter: 2010Q2

REPORT INFORMATION
  Report Type: 
  Country: None (occurrence: None)
  Receive Date: 20100616
  Receipt Date: 20090518
  Transmission Date: 20101027
  Serious: No
  Sender: FDA-Public Use
  Company Number: US-ASTRAZENECA-2009UW12698

PATIENT
  Age: 67 Year
  Sex: Male

DRUGS (4)
  1. PULMICORT RESPULES [Suspect]
     Indication: HYPERSENSITIVITY
     Dosage: 0.5 MG/DL DAILY
     Route: 055
  2. NEOMED BICARB SOLUTION [Concomitant]
  3. SINGULAIR [Concomitant]
  4. ZYRTEC [Concomitant]

REACTIONS (5)
  - ANXIETY [None]
  - HYPERTENSION [None]
  - NERVOUSNESS [None]
  - OFF LABEL USE [None]
  - THERAPEUTIC RESPONSE UNEXPECTED [None]
